FAERS Safety Report 4962194-9 (Version None)
Quarter: 2006Q1

REPORT INFORMATION
  Report Type: 
  Country: None (occurrence: None)
  Receive Date: 20060329
  Receipt Date: 20060322
  Transmission Date: 20060701
  Serious: Yes (Hospitalization, Other)
  Sender: FDA-Public Use
  Company Number: WAES 0603USA03501

PATIENT
  Age: 65 Year
  Sex: Female
  Weight: 56.6996 kg

DRUGS (5)
  1. DECADRON [Suspect]
     Indication: BRAIN OEDEMA
     Dosage: PO
     Route: 048
  2. TEMODAR [Suspect]
     Indication: GLIOBLASTOMA MULTIFORME
     Dosage: 220 MG/DAILY/PO
     Route: 048
     Dates: start: 20060213, end: 20060217
  3. MEPRON [Concomitant]
  4. PEPCID [Concomitant]
  5. TRILEPTAL [Concomitant]

REACTIONS (5)
  - BLOOD POTASSIUM INCREASED [None]
  - BLOOD SODIUM DECREASED [None]
  - BRAIN OEDEMA [None]
  - CONFUSIONAL STATE [None]
  - HYPERGLYCAEMIA [None]
